FAERS Safety Report 22267231 (Version 2)
Quarter: 2023Q2

REPORT INFORMATION
  Report Type: Spontaneous
  Country: DE (occurrence: DE)
  Receive Date: 20230428
  Receipt Date: 20230529
  Transmission Date: 20230721
  Serious: Yes (Death)
  Sender: FDA-Public Use
  Company Number: DE-SHIONOGI, INC-2023000947

PATIENT
  Age: 48 Year
  Sex: Male
  Weight: 61 kg

DRUGS (3)
  1. FETROJA [Suspect]
     Active Substance: CEFIDEROCOL SULFATE TOSYLATE
     Indication: Klebsiella infection
     Dosage: 2 G, 3 HOURS
     Route: 042
  2. FETROJA [Suspect]
     Active Substance: CEFIDEROCOL SULFATE TOSYLATE
     Indication: Drug resistance
     Dosage: DAILY DOSE OF 6 G QUASI-CONTINUOUSLY OVER A PERIOD OF 24 HOUR (3 ? 2 G OVER 8 HOUR EACH)
     Route: 042
  3. FETROJA [Suspect]
     Active Substance: CEFIDEROCOL SULFATE TOSYLATE
     Indication: Bacterial infection

REACTIONS (2)
  - Death [Fatal]
  - Off label use [Unknown]
